FAERS Safety Report 5355606-2 (Version None)
Quarter: 2007Q2

REPORT INFORMATION
  Report Type: 
  Country: None (occurrence: None)
  Receive Date: 20070613
  Receipt Date: 20070607
  Transmission Date: 20071010
  Serious: Yes (Other)
  Sender: FDA-Public Use
  Company Number: A0655128A

PATIENT
  Age: 15 Year
  Sex: Female

DRUGS (2)
  1. LAMICTAL [Suspect]
     Dosage: 25MG UNKNOWN
     Route: 065
  2. TOPAMAX [Suspect]
     Dosage: 25MG UNKNOWN
     Route: 065

REACTIONS (6)
  - ABNORMAL BEHAVIOUR [None]
  - CONVULSION [None]
  - DRUG DISPENSING ERROR [None]
  - EDUCATIONAL PROBLEM [None]
  - SOMNOLENCE [None]
  - WEIGHT DECREASED [None]
